FAERS Safety Report 5892999-1 (Version None)
Quarter: 2008Q3

REPORT INFORMATION
  Report Type: 
  Country: None (occurrence: None)
  Receive Date: 20080923
  Receipt Date: 20070723
  Transmission Date: 20090109
  Serious: No
  Sender: FDA-Public Use
  Company Number: US-ASTRAZENECA-2007UW13667

PATIENT
  Age: 15726 Day
  Sex: Male
  Weight: 86.4 kg

DRUGS (14)
  1. SEROQUEL [Suspect]
     Indication: POST-TRAUMATIC STRESS DISORDER
     Dosage: 30 TO 300 MG
     Route: 048
     Dates: start: 20041012, end: 20060926
  2. TRAZODONE HCL [Concomitant]
  3. BUPROPION HCL [Concomitant]
  4. METFORMIN HCL [Concomitant]
  5. SIMVASTATIN [Concomitant]
  6. LISINOPRIL [Concomitant]
  7. METHOCARBAMOL [Concomitant]
  8. LORATADINE [Concomitant]
  9. IBUPROFEN [Concomitant]
  10. FLUNISOLIDE [Concomitant]
  11. FELODIPINE [Concomitant]
  12. NYSTATIN [Concomitant]
  13. COMBIVENT [Concomitant]
  14. ACETAMINOPHEN [Concomitant]

REACTIONS (6)
  - ABDOMINAL DISTENSION [None]
  - DIABETES MELLITUS [None]
  - DIARRHOEA [None]
  - HYPERLIPIDAEMIA [None]
  - MALAISE [None]
  - VISION BLURRED [None]
